FAERS Safety Report 10625575 (Version 2)
Quarter: 2014Q4

REPORT INFORMATION
  Report Type: Spontaneous
  Country: US (occurrence: US)
  Receive Date: 20141204
  Receipt Date: 20141229
  Transmission Date: 20150529
  Serious: No
  Sender: FDA-Public Use
  Company Number: US-PFIZER INC-2014332897

PATIENT
  Age: 51 Year
  Sex: Male

DRUGS (6)
  1. RISPERDAL [Concomitant]
     Active Substance: RISPERIDONE
     Dosage: UNK
     Dates: start: 201310
  2. VISTARIL [Concomitant]
     Active Substance: HYDROXYZINE PAMOATE
     Dosage: UNK
     Dates: start: 201310, end: 201405
  3. NEURONTIN [Suspect]
     Active Substance: GABAPENTIN
     Indication: MANIA
     Dosage: 1200 MG, DAILY
     Dates: start: 201310
  4. NEURONTIN [Suspect]
     Active Substance: GABAPENTIN
     Indication: BIPOLAR DISORDER
     Dosage: 500 MG, UNK
  5. NEURONTIN [Suspect]
     Active Substance: GABAPENTIN
     Indication: NEUROPATHY PERIPHERAL
     Dosage: 1800 MG, DAILY
     Dates: end: 201405
  6. NEURONTIN [Suspect]
     Active Substance: GABAPENTIN
     Indication: DEPRESSION

REACTIONS (3)
  - Dizziness [Recovered/Resolved]
  - Drug ineffective [Recovered/Resolved]
  - Malaise [Unknown]
